FAERS Safety Report 16178127 (Version 1)
Quarter: 2019Q2

REPORT INFORMATION
  Report Type: Other
  Country: US (occurrence: US)
  Receive Date: 20190410
  Receipt Date: 20190410
  Transmission Date: 20190711
  Serious: Yes (Hospitalization, Disabling)
  Sender: FDA-Public Use
  Company Number: US-FDC LIMITED-2065629

PATIENT
  Age: 43 Year
  Sex: Male

DRUGS (1)
  1. CIPROFLOXACIN. [Suspect]
     Active Substance: CIPROFLOXACIN
     Indication: UPPER RESPIRATORY TRACT INFECTION
     Route: 065

REACTIONS (1)
  - Tendon rupture [Recovered/Resolved]
